FAERS Safety Report 20450143 (Version 1)
Quarter: 2022Q1

REPORT INFORMATION
  Report Type: Spontaneous
  Country: US (occurrence: US)
  Receive Date: 20220209
  Receipt Date: 20220209
  Transmission Date: 20220423
  Serious: No
  Sender: FDA-Public Use
  Company Number: US-NOVOPROD-848233

PATIENT
  Age: 13 Year
  Sex: Female

DRUGS (1)
  1. NOVOSEVEN RT [Suspect]
     Active Substance: COAGULATION FACTOR VIIA RECOMBINANT HUMAN
     Indication: Factor VII deficiency
     Dosage: UNK UNK, SINGLE
     Route: 042
     Dates: start: 20210727, end: 20210727

REACTIONS (1)
  - Headache [Unknown]

NARRATIVE: CASE EVENT DATE: 20210727
